FAERS Safety Report 6611414-3 (Version None)
Quarter: 2010Q1

REPORT INFORMATION
  Report Type: 
  Country: None (occurrence: None)
  Receive Date: 20100303
  Receipt Date: 20100224
  Transmission Date: 20100710
  Serious: Yes (Death, Life-Threatening, Hospitalization)
  Sender: FDA-Public Use
  Company Number: FR-CELGENEUS-056-C5013-10011555

PATIENT
  Sex: Male
  Weight: 80 kg

DRUGS (11)
  1. CC-5013 [Suspect]
     Indication: MULTIPLE MYELOMA
     Route: 048
     Dates: start: 20100106, end: 20100123
  2. DEXAMETHASONE [Suspect]
     Indication: MULTIPLE MYELOMA
     Route: 065
     Dates: start: 20100106
  3. KLAMATH [Concomitant]
     Indication: DYSPEPSIA
     Route: 048
     Dates: start: 20100105, end: 20100124
  4. DESNODIUM [Concomitant]
     Indication: DYSPEPSIA
     Route: 048
     Dates: start: 20100105, end: 20100124
  5. ASPEGIC 1000 [Concomitant]
     Indication: THROMBOSIS PROPHYLAXIS
     Route: 048
     Dates: start: 20100105, end: 20100124
  6. LYTOS [Concomitant]
     Route: 048
     Dates: start: 20100105, end: 20100124
  7. ORACILLINE [Concomitant]
     Route: 048
     Dates: start: 20100105, end: 20100123
  8. ZELITREX [Concomitant]
     Indication: PAIN PROPHYLAXIS
     Route: 048
     Dates: start: 20100105, end: 20100124
  9. BACTRIM DS [Concomitant]
     Route: 048
     Dates: start: 20100105, end: 20100124
  10. PANDEMRIX [Concomitant]
     Indication: PROPHYLAXIS
     Route: 023
     Dates: start: 20100105, end: 20100105
  11. FLUDEX [Concomitant]
     Indication: DRUG USE FOR UNKNOWN INDICATION
     Route: 065
     Dates: start: 20100101

REACTIONS (2)
  - COLITIS ISCHAEMIC [None]
  - GASTROENTERITIS [None]
